FAERS Safety Report 5061441-5 (Version None)
Quarter: 2006Q3

REPORT INFORMATION
  Report Type: 
  Country: None (occurrence: None)
  Receive Date: 20060703
  Receipt Date: 20060410
  Transmission Date: 20061208
  Serious: No
  Sender: FDA-Public Use
  Company Number: 2006PV011867

PATIENT
  Age: 62 Year
  Sex: Female

DRUGS (7)
  1. SYMLIN [Suspect]
     Indication: DIABETES MELLITUS NON-INSULIN-DEPENDENT
     Dosage: 60 MCG; QD; SC
     Route: 058
     Dates: start: 20060329, end: 20060406
  2. LANTUS [Concomitant]
  3. AMARYL [Concomitant]
  4. COZAAR [Concomitant]
  5. ZETIA [Concomitant]
  6. ALLEGRA [Concomitant]
  7. DIURETICS [Concomitant]

REACTIONS (3)
  - DYSPNOEA [None]
  - FEELING ABNORMAL [None]
  - PALPITATIONS [None]
